FAERS Safety Report 14069325 (Version 1)
Quarter: 2017Q4

REPORT INFORMATION
  Report Type: Spontaneous
  Country: NO (occurrence: NO)
  Receive Date: 20171010
  Receipt Date: 20171010
  Transmission Date: 20180321
  Serious: Yes (Other)
  Sender: FDA-Public Use
  Company Number: NO-PFIZER INC-2017431701

PATIENT
  Age: 51 Year
  Sex: Male

DRUGS (8)
  1. SIMVASTATIN. [Suspect]
     Active Substance: SIMVASTATIN
     Indication: BLOOD CHOLESTEROL INCREASED
     Dosage: FOR A SHORT PERIOD OF TIME
  2. PLAVIX [Concomitant]
     Active Substance: CLOPIDOGREL BISULFATE
     Indication: PROPHYLAXIS
     Dosage: UNK
  3. ALBYL-E [Concomitant]
     Active Substance: ASPIRIN\MAGNESIUM OXIDE
     Indication: PROPHYLAXIS
     Dosage: UNK
  4. LIPITOR [Suspect]
     Active Substance: ATORVASTATIN CALCIUM
     Dosage: 40 MG, 1X/DAY
     Dates: start: 2013, end: 20150401
  5. ADALAT [Concomitant]
     Active Substance: NIFEDIPINE
     Indication: HYPERTENSION
     Dosage: UNK
  6. LOSARTAN. [Concomitant]
     Active Substance: LOSARTAN
     Indication: HYPERTENSION
     Dosage: UNK
  7. LIPITOR [Suspect]
     Active Substance: ATORVASTATIN CALCIUM
     Indication: ARTERIOSCLEROSIS
     Dosage: UNK
     Dates: start: 2006, end: 2006
  8. CARDURAN [Concomitant]
     Active Substance: DOXAZOSIN MESYLATE
     Indication: GOUT
     Dosage: UNK

REACTIONS (13)
  - Dyschezia [Unknown]
  - Testicular mass [Unknown]
  - Musculoskeletal stiffness [Unknown]
  - Memory impairment [Unknown]
  - Cerebrovascular accident [Unknown]
  - Haemorrhage subcutaneous [Recovered/Resolved]
  - Erectile dysfunction [Unknown]
  - Speech disorder [Unknown]
  - Muscle contractions involuntary [Unknown]
  - Influenza like illness [Unknown]
  - Amnesia [Recovered/Resolved]
  - Visual field defect [Unknown]
  - Urine output increased [Unknown]

NARRATIVE: CASE EVENT DATE: 20060401
